FAERS Safety Report 11643015 (Version 2)
Quarter: 2015Q4

REPORT INFORMATION
  Report Type: Spontaneous
  Country: US (occurrence: US)
  Receive Date: 20151020
  Receipt Date: 20151127
  Transmission Date: 20160304
  Serious: Yes (Other)
  Sender: FDA-Public Use
  Company Number: US-ASTRAZENECA-2015SE99270

PATIENT
  Age: 715 Month
  Sex: Male
  Weight: 95.3 kg

DRUGS (6)
  1. XANAX [Concomitant]
     Active Substance: ALPRAZOLAM
     Route: 048
  2. SERTRALINE [Concomitant]
     Active Substance: SERTRALINE HYDROCHLORIDE
     Indication: ANXIETY
     Route: 048
  3. ADVAIR HFA [Concomitant]
     Active Substance: FLUTICASONE PROPIONATE\SALMETEROL XINAFOATE
  4. XANAX [Concomitant]
     Active Substance: ALPRAZOLAM
     Route: 048
  5. SYMBICORT [Suspect]
     Active Substance: BUDESONIDE\FORMOTEROL FUMARATE DIHYDRATE
     Indication: CHRONIC OBSTRUCTIVE PULMONARY DISEASE
     Dosage: 160 4.5, 2 PUFFS TWICE A DAY
     Route: 055
     Dates: start: 201508
  6. ALEVE [Concomitant]
     Active Substance: NAPROXEN SODIUM
     Indication: PAIN
     Route: 048

REACTIONS (7)
  - Laryngeal cancer [Unknown]
  - Pain in extremity [Unknown]
  - Dyspnoea [Unknown]
  - Pain [Unknown]
  - Anxiety [Unknown]
  - Productive cough [Unknown]
  - Vocal cord polyp [Unknown]

NARRATIVE: CASE EVENT DATE: 201509
